FAERS Safety Report 19796930 (Version 2)
Quarter: 2021Q3

REPORT INFORMATION
  Report Type: Spontaneous
  Country: MX (occurrence: MX)
  Receive Date: 20210907
  Receipt Date: 20210908
  Transmission Date: 20211014
  Serious: Yes (Hospitalization)
  Sender: FDA-Public Use
  Company Number: MX-ORGANON-O2109MEX000430

PATIENT
  Age: 24 Year
  Sex: Female

DRUGS (1)
  1. BETAMETHASONE ACETATE (+) BETAMETHASONE SODIUM PHOSPHATE [Suspect]
     Active Substance: BETAMETHASONE ACETATE\BETAMETHASONE SODIUM PHOSPHATE
     Indication: MATERNAL THERAPY TO ENHANCE FOETAL LUNG MATURITY
     Dosage: 2.71 MG / 3 MG Q.12 H
     Route: 030

REACTIONS (3)
  - Threatened labour [Recovered/Resolved]
  - Maternal exposure timing unspecified [Recovered/Resolved]
  - Adverse event [Recovered/Resolved]
